FAERS Safety Report 18388115 (Version 1)
Quarter: 2020Q4

REPORT INFORMATION
  Report Type: Spontaneous
  Country: TR (occurrence: TR)
  Receive Date: 20201015
  Receipt Date: 20201015
  Transmission Date: 20210114
  Serious: Yes (Other)
  Sender: FDA-Public Use
  Company Number: TR-ASTRAZENECA-2020SF00884

PATIENT
  Sex: Female

DRUGS (1)
  1. BYETTA [Suspect]
     Active Substance: EXENATIDE
     Dosage: 10.0MG UNKNOWN
     Route: 058
     Dates: start: 201909

REACTIONS (4)
  - Postprandial hypoglycaemia [Unknown]
  - Hypoglycaemia [Unknown]
  - Circumstance or information capable of leading to medication error [Unknown]
  - Drug delivery system issue [Unknown]
